FAERS Safety Report 6454609-4 (Version None)
Quarter: 2009Q4

REPORT INFORMATION
  Report Type: 
  Country: None (occurrence: None)
  Receive Date: 20091118
  Receipt Date: 20091109
  Transmission Date: 20100525
  Serious: Yes (Hospitalization)
  Sender: FDA-Public Use
  Company Number: JPI-P-006378

PATIENT
  Age: 33 Year
  Sex: Female

DRUGS (17)
  1. XYREM [Suspect]
     Indication: NARCOLEPSY
     Dosage: SEE IMAGE
     Route: 048
     Dates: start: 20090225, end: 20090101
  2. XYREM [Suspect]
     Indication: SOMNOLENCE
     Dosage: SEE IMAGE
     Route: 048
     Dates: start: 20090225, end: 20090101
  3. XYREM [Suspect]
     Indication: NARCOLEPSY
     Dosage: SEE IMAGE
     Route: 048
     Dates: start: 20090225, end: 20090101
  4. XYREM [Suspect]
     Indication: SOMNOLENCE
     Dosage: SEE IMAGE
     Route: 048
     Dates: start: 20090225, end: 20090101
  5. XYREM [Suspect]
     Indication: NARCOLEPSY
     Dosage: SEE IMAGE
     Route: 048
     Dates: start: 20090114, end: 20090210
  6. XYREM [Suspect]
     Indication: SOMNOLENCE
     Dosage: SEE IMAGE
     Route: 048
     Dates: start: 20090114, end: 20090210
  7. XYREM [Suspect]
     Indication: NARCOLEPSY
     Dosage: SEE IMAGE
     Route: 048
     Dates: start: 20090114, end: 20090210
  8. XYREM [Suspect]
     Indication: SOMNOLENCE
     Dosage: SEE IMAGE
     Route: 048
     Dates: start: 20090114, end: 20090210
  9. XYREM [Suspect]
     Indication: NARCOLEPSY
     Dosage: SEE IMAGE
     Route: 048
     Dates: start: 20090211, end: 20090224
  10. XYREM [Suspect]
     Indication: SOMNOLENCE
     Dosage: SEE IMAGE
     Route: 048
     Dates: start: 20090211, end: 20090224
  11. METHYLPHENIDATE HCL [Concomitant]
  12. AMPHETAMINE SULFATE [Concomitant]
  13. MODAFINIL [Concomitant]
  14. QUETIAPINE [Concomitant]
  15. FUMARATE [Concomitant]
  16. ARIPIPRAZOLE [Concomitant]
  17. ESTROGEN-PROGESTIN COMBINATION [Concomitant]

REACTIONS (11)
  - DISTURBANCE IN ATTENTION [None]
  - EMOTIONAL DISORDER [None]
  - FEELING ABNORMAL [None]
  - HUNGER [None]
  - JOINT DISLOCATION [None]
  - PELVIC FRACTURE [None]
  - ROAD TRAFFIC ACCIDENT [None]
  - SLEEP DISORDER [None]
  - SNORING [None]
  - SOMNOLENCE [None]
  - TACHYPHRENIA [None]
